FAERS Safety Report 17026502 (Version 1)
Quarter: 2019Q4

REPORT INFORMATION
  Report Type: Spontaneous
  Country: US (occurrence: US)
  Receive Date: 20191009
  Receipt Date: 20191009
  Transmission Date: 20200122
  Serious: Yes (Hospitalization)
  Sender: FDA-Public Use
  Company Number: None

PATIENT
  Age: 60 Year
  Sex: Female
  Weight: 87.1 kg

DRUGS (4)
  1. FOLINIC ACID [Suspect]
     Active Substance: LEUCOVORIN
  2. FLUOROURACIL. [Suspect]
     Active Substance: FLUOROURACIL
  3. ABRAXANE [Suspect]
     Active Substance: PACLITAXEL
  4. OXALIPLATIN. [Suspect]
     Active Substance: OXALIPLATIN

REACTIONS (2)
  - Hepatic failure [None]
  - Hepatobiliary disease [None]

NARRATIVE: CASE EVENT DATE: 20191002
